FAERS Safety Report 5475150-1 (Version None)
Quarter: 2007Q4

REPORT INFORMATION
  Report Type: 
  Country: None (occurrence: None)
  Receive Date: 20071002
  Receipt Date: 20070925
  Transmission Date: 20080405
  Serious: Yes (Other)
  Sender: FDA-Public Use
  Company Number: US-PFIZER INC-2007017206

PATIENT
  Age: 35 Year
  Sex: Male
  Weight: 86.2 kg

DRUGS (3)
  1. GEODON [Suspect]
     Indication: BIPOLAR DISORDER
     Route: 048
  2. XANAX [Concomitant]
  3. ASPIRIN [Concomitant]

REACTIONS (5)
  - DISCOMFORT [None]
  - INSOMNIA [None]
  - MYALGIA [None]
  - RESTLESSNESS [None]
  - SUICIDAL IDEATION [None]
